FAERS Safety Report 17261727 (Version 1)
Quarter: 2020Q1

REPORT INFORMATION
  Report Type: Report from Study
  Country: FR (occurrence: FR)
  Receive Date: 20200113
  Receipt Date: 20200113
  Transmission Date: 20200409
  Serious: Yes (Death, Life-Threatening, Hospitalization, Other)
  Sender: FDA-Public Use
  Company Number: FR-MYLANLABS-2020M1004512

PATIENT
  Age: 64 Year
  Sex: Female
  Weight: 87 kg

DRUGS (19)
  1. PREDNISONE. [Suspect]
     Active Substance: PREDNISONE
     Dosage: 40 MILLIGRAM, QD
     Route: 065
     Dates: start: 20181025, end: 20181029
  2. PREDNISONE. [Suspect]
     Active Substance: PREDNISONE
     Dosage: 15 MILLIGRAM, QD
     Route: 065
     Dates: start: 20181212, end: 20181217
  3. METHYLPREDNISOLONE. [Suspect]
     Active Substance: METHYLPREDNISOLONE
     Indication: ACUTE GRAFT VERSUS HOST DISEASE
     Dosage: 180 MILLIGRAM, QD
     Route: 065
     Dates: start: 20180801
  4. CORTANCYL [Concomitant]
     Active Substance: PREDNISONE
     Dosage: UNK
     Dates: start: 20181212
  5. ZEBETA [Concomitant]
     Active Substance: BISOPROLOL FUMARATE
     Dosage: UNK
  6. PREDNISONE. [Suspect]
     Active Substance: PREDNISONE
     Indication: ACUTE GRAFT VERSUS HOST DISEASE
     Dosage: 120 MILLIGRAM, QD
     Route: 065
     Dates: start: 20180831, end: 20180903
  7. PREDNISONE. [Suspect]
     Active Substance: PREDNISONE
     Dosage: 35 MILLIGRAM, QD
     Route: 065
     Dates: start: 20181030, end: 20181115
  8. CYMEVAN [Concomitant]
     Active Substance: GANCICLOVIR
     Indication: CYTOMEGALOVIRUS INFECTION
     Dosage: 225 MILLIGRAM, QD
     Dates: start: 20180809, end: 20181115
  9. MERONEM [Concomitant]
     Active Substance: MEROPENEM
     Dosage: UNK
  10. PREDNISONE. [Suspect]
     Active Substance: PREDNISONE
     Dosage: 80 MILLIGRAM, QD
     Route: 065
     Dates: start: 20180910, end: 20181003
  11. CORVASAL                           /00547101/ [Concomitant]
     Active Substance: MOLSIDOMINE
     Dosage: UNK
  12. PREDNISONE. [Suspect]
     Active Substance: PREDNISONE
     Dosage: 110 MILLIGRAM, QD
     Route: 065
     Dates: start: 20180904, end: 20180909
  13. PREDNISONE. [Suspect]
     Active Substance: PREDNISONE
     Dosage: 70 MILLIGRAM, QD
     Route: 065
     Dates: start: 20181004, end: 20181017
  14. ITACITINIB [Suspect]
     Active Substance: ITACITINIB
     Indication: ACUTE GRAFT VERSUS HOST DISEASE
     Dosage: 200 MILLIGRAM, BID
     Dates: start: 20180801, end: 20190104
  15. NOXAFIL [Concomitant]
     Active Substance: POSACONAZOLE
     Dosage: UNK
     Dates: start: 20160909
  16. PREDNISONE. [Suspect]
     Active Substance: PREDNISONE
     Dosage: 50 MILLIGRAM, QD
     Route: 065
     Dates: start: 20181018, end: 20181024
  17. PREDNISONE. [Suspect]
     Active Substance: PREDNISONE
     Dosage: 10 MILLIGRAM, QD
     Route: 065
     Dates: start: 20181218, end: 20181221
  18. PREDNISONE. [Suspect]
     Active Substance: PREDNISONE
     Dosage: 30 MILLIGRAM, QD
     Route: 065
     Dates: start: 20181116, end: 20181211
  19. PREDNISONE. [Suspect]
     Active Substance: PREDNISONE
     Dosage: 5 MILLIGRAM, QD
     Route: 065
     Dates: start: 20181222, end: 20181227

REACTIONS (3)
  - Cytomegalovirus infection [Not Recovered/Not Resolved]
  - Pyrexia [Not Recovered/Not Resolved]
  - Respiratory distress [Fatal]

NARRATIVE: CASE EVENT DATE: 20181116
